FAERS Safety Report 4282274-3 (Version None)
Quarter: 2004Q1

REPORT INFORMATION
  Report Type: 
  Country: None (occurrence: None)
  Receive Date: 20040108
  Receipt Date: 20030130
  Transmission Date: 20041129
  Serious: Yes (Other)
  Sender: FDA-Public Use
  Company Number: HQWYE138703FEB03

PATIENT
  Age: 41 Year
  Sex: Female
  Weight: 96.25 kg

DRUGS (2)
  1. PREMPRO [Suspect]
     Indication: HORMONE REPLACEMENT THERAPY
     Dosage: 1 TABLET DAILY; 0.625 MG, ORAL
     Route: 048
     Dates: start: 20011101, end: 20030122
  2. ACCUPRIL [Concomitant]

REACTIONS (3)
  - BREAST CANCER FEMALE [None]
  - SMEAR CERVIX ABNORMAL [None]
  - UTERINE CANCER [None]
